FAERS Safety Report 6585636-4 (Version None)
Quarter: 2010Q1

REPORT INFORMATION
  Report Type: 
  Country: None (occurrence: None)
  Receive Date: 20100217
  Receipt Date: 20100208
  Transmission Date: 20100710
  Serious: Yes (Other)
  Sender: FDA-Public Use
  Company Number: DE-MYLANLABS-2010S1001936

PATIENT
  Age: 38 Year
  Sex: Female

DRUGS (2)
  1. LANSOPRAZOLE [Suspect]
     Indication: REFLUX OESOPHAGITIS
     Route: 048
     Dates: start: 20090603
  2. LANSOPRAZOLE [Suspect]
     Route: 048
     Dates: end: 20091215

REACTIONS (3)
  - ECZEMA [None]
  - RASH [None]
  - THROAT IRRITATION [None]
